FAERS Safety Report 5798046-4 (Version None)
Quarter: 2008Q3

REPORT INFORMATION
  Report Type: 
  Country: None (occurrence: None)
  Receive Date: 20080701
  Receipt Date: 20080701
  Transmission Date: 20090109
  Serious: No
  Sender: FDA-Public Use
  Company Number: None

PATIENT
  Sex: Male

DRUGS (2)
  1. COUMADIN [Suspect]
     Indication: ANTICOAGULANT THERAPY
     Dosage: 10 MG DAILY X 2 DAYS PO
     Route: 048
     Dates: start: 20080625, end: 20080626
  2. COUMADIN [Suspect]
     Dosage: 5 MG DAILY X 1 DAY PO
     Route: 048
     Dates: start: 20080627, end: 20080627

REACTIONS (2)
  - INTERNATIONAL NORMALISED RATIO INCREASED [None]
  - PHARMACEUTICAL PRODUCT COMPLAINT [None]
